FAERS Safety Report 20619105 (Version 1)
Quarter: 2022Q1

REPORT INFORMATION
  Report Type: Spontaneous
  Country: DE (occurrence: DE)
  Receive Date: 20220322
  Receipt Date: 20220322
  Transmission Date: 20220423
  Serious: Yes (Other)
  Sender: FDA-Public Use
  Company Number: DE-BoehringerIngelheim-2022-BI-159857

PATIENT
  Sex: Male
  Weight: 103 kg

DRUGS (6)
  1. JARDIANCE [Suspect]
     Active Substance: EMPAGLIFLOZIN
     Indication: Type 2 diabetes mellitus
  2. METFORMIN [Concomitant]
     Active Substance: METFORMIN HYDROCHLORIDE
     Indication: Type 2 diabetes mellitus
  3. INSULIN GLARGINE [Concomitant]
     Active Substance: INSULIN GLARGINE
     Indication: Type 2 diabetes mellitus
     Dosage: DAILY DOSE: 300 IU/ML
  4. INSULIN GLARGINE [Concomitant]
     Active Substance: INSULIN GLARGINE
  5. INSULIN NOS [Concomitant]
     Active Substance: INSULIN NOS
     Indication: Type 2 diabetes mellitus
     Dates: start: 2020
  6. SEMAGLUTIDE [Concomitant]
     Active Substance: SEMAGLUTIDE
     Indication: Type 2 diabetes mellitus
     Dates: start: 2021

REACTIONS (2)
  - Myocardial infarction [Unknown]
  - Myocardial infarction [Unknown]

NARRATIVE: CASE EVENT DATE: 20200101
